FAERS Safety Report 7292310-8 (Version None)
Quarter: 2011Q1

REPORT INFORMATION
  Report Type: 
  Country: None (occurrence: None)
  Receive Date: 20110202
  Receipt Date: 20110118
  Transmission Date: 20110831
  Serious: Yes (Other)
  Sender: FDA-Public Use
  Company Number: 2011SP000616

PATIENT
  Sex: Female

DRUGS (4)
  1. DESLORATADINE [Suspect]
  2. DESLORATADINE [Suspect]
  3. DESLORATADINE [Suspect]
     Indication: PRODUCT USED FOR UNKNOWN INDICATION
     Dosage: ; PO
     Route: 048
  4. DESLORATADINE [Suspect]

REACTIONS (1)
  - BLOOD PRESSURE INCREASED [None]
